FAERS Safety Report 5721009-1 (Version None)
Quarter: 2008Q2

REPORT INFORMATION
  Report Type: 
  Country: None (occurrence: None)
  Receive Date: 20080423
  Receipt Date: 20071126
  Transmission Date: 20081010
  Serious: Yes (Hospitalization)
  Sender: FDA-Public Use
  Company Number: 251905

PATIENT
  Age: 31 Year
  Sex: Male
  Weight: 47.4 kg

DRUGS (8)
  1. AVASTIN [Suspect]
     Indication: DRUG USE FOR UNKNOWN INDICATION
     Dosage: 500 MG
  2. ADRIAMYCIN PFS [Suspect]
     Indication: CHONDROSARCOMA
     Dosage: 40 MG, INTRAVENOUS
     Route: 042
     Dates: start: 20070224
  3. IFOSFAMIDE [Suspect]
     Indication: CHONDROSARCOMA
     Dosage: 4 G, INTRAVENOUS
     Route: 042
     Dates: start: 20070224
  4. GEMZAR [Suspect]
     Indication: DRUG USE FOR UNKNOWN INDICATION
     Dosage: 2400 MG
  5. DOCETAXEL [Suspect]
     Indication: DRUG USE FOR UNKNOWN INDICATION
     Dosage: 80 MG
  6. MS CONTIN [Concomitant]
  7. LEVAQUIN [Concomitant]
  8. NEULASTA [Concomitant]

REACTIONS (2)
  - GASTRIC PERFORATION [None]
  - NEUTROPENIA [None]
